FAERS Safety Report 17007594 (Version 1)
Quarter: 2019Q4

REPORT INFORMATION
  Report Type: Spontaneous
  Country: JP (occurrence: JP)
  Receive Date: 20191108
  Receipt Date: 20191108
  Transmission Date: 20200122
  Serious: Yes (Hospitalization)
  Sender: FDA-Public Use
  Company Number: JP-009507513-1911JPN002073

PATIENT
  Age: 79 Year
  Sex: Female

DRUGS (12)
  1. LENDORMIN [Concomitant]
     Active Substance: BROTIZOLAM
     Dosage: 0.25 MG, QD
  2. EDIROL [Concomitant]
     Active Substance: ELDECALCITOL
     Dosage: 0.75 MG, 1D
  3. DESYREL [Concomitant]
     Active Substance: TRAZODONE HYDROCHLORIDE
     Dosage: 25 MG, 1D
  4. LIMAS [Concomitant]
     Active Substance: LITHIUM CARBONATE
     Dosage: 200 MG, BID
  5. LAMICTAL [Suspect]
     Active Substance: LAMOTRIGINE
     Dosage: 25 MG, BID
     Route: 048
     Dates: start: 20160909, end: 20160922
  6. RIVOTRIL [Suspect]
     Active Substance: CLONAZEPAM
     Indication: SLEEP DISORDER
     Dosage: 1 MG, 1D
     Route: 048
     Dates: start: 20160903, end: 20160922
  7. REFLEX [Suspect]
     Active Substance: MIRTAZAPINE
     Indication: SLEEP DISORDER
     Dosage: 30 MG, 1D
     Route: 048
     Dates: start: 20160826, end: 20160922
  8. LAMICTAL [Suspect]
     Active Substance: LAMOTRIGINE
     Indication: BIPOLAR DISORDER
     Dosage: 25 MG, QD
     Route: 048
     Dates: start: 20160826, end: 20160908
  9. MYSLEE [Concomitant]
     Active Substance: ZOLPIDEM TARTRATE
     Dosage: 10 MG, 1D
  10. LANDSEN [Concomitant]
     Active Substance: CLONAZEPAM
     Dosage: 0.5 MG, BID
  11. METHYCOBAL [Concomitant]
     Active Substance: METHYLCOBALAMIN
     Dosage: 500 MG, 1D
  12. MAGMITT [Concomitant]
     Active Substance: MAGNESIUM OXIDE
     Dosage: 330 MG, QD

REACTIONS (3)
  - Rash [Recovered/Resolved]
  - Erythema [Recovering/Resolving]
  - Pollakiuria [Unknown]

NARRATIVE: CASE EVENT DATE: 20160831
